FAERS Safety Report 4394828-4 (Version None)
Quarter: 2004Q3

REPORT INFORMATION
  Report Type: 
  Country: None (occurrence: None)
  Receive Date: 20040706
  Receipt Date: 20040625
  Transmission Date: 20050211
  Serious: Yes (Hospitalization, Disabling)
  Sender: FDA-Public Use
  Company Number: 207435

PATIENT
  Age: 72 Year
  Sex: Male

DRUGS (7)
  1. METALYSE              (TENECTEPLASE) [Suspect]
     Indication: MYOCARDIAL INFARCTION
     Dosage: 8000 UNIT, INTRAVENOUS
     Route: 042
     Dates: start: 20040308, end: 20040308
  2. METALYSE              (TENECTEPLASE) [Suspect]
     Indication: MYOCARDIAL INFARCTION
     Dosage: 8000 UNIT, INTRAVENOUS
     Route: 042
     Dates: start: 20040331, end: 20040331
  3. SIMVASTATIN [Concomitant]
  4. PERINDOPRIL [Concomitant]
  5. ASPIRIN [Concomitant]
  6. BISOPROLOL FUMARATE [Concomitant]
  7. OMEPRAZOLE [Concomitant]

REACTIONS (1)
  - HEMIANOPIA HOMONYMOUS [None]
